FAERS Safety Report 21355768 (Version 1)
Quarter: 2022Q3

REPORT INFORMATION
  Report Type: Spontaneous
  Country: US (occurrence: US)
  Receive Date: 20220920
  Receipt Date: 20220920
  Transmission Date: 20221026
  Serious: No
  Sender: FDA-Public Use
  Company Number: US-THERAPEUTICSMD-2021TMD02588

PATIENT
  Age: 20 Year
  Sex: Female
  Weight: 49.887 kg

DRUGS (1)
  1. ANNOVERA [Suspect]
     Active Substance: ETHINYL ESTRADIOL\SEGESTERONE ACETATE
     Indication: Contraception
     Dosage: 1 RING, ^STANDARD DIRECTION^
     Route: 067
     Dates: start: 20210927

REACTIONS (4)
  - Pollakiuria [Not Recovered/Not Resolved]
  - Micturition urgency [Not Recovered/Not Resolved]
  - Dysuria [Not Recovered/Not Resolved]
  - Urinary tract infection [Not Recovered/Not Resolved]

NARRATIVE: CASE EVENT DATE: 20211001
